FAERS Safety Report 11816575 (Version 1)
Quarter: 2015Q4

REPORT INFORMATION
  Report Type: Spontaneous
  Country: GB (occurrence: GB)
  Receive Date: 20151210
  Receipt Date: 20151210
  Transmission Date: 20160305
  Serious: Yes (Life-Threatening, Other)
  Sender: FDA-Public Use
  Company Number: PHHY2015GB157998

PATIENT
  Age: 35 Year
  Weight: 70 kg

DRUGS (1)
  1. MIRTAZAPINE. [Suspect]
     Active Substance: MIRTAZAPINE
     Indication: ANXIETY
     Dosage: VARIOUS (NORMAL) DOSES
     Route: 048
     Dates: start: 20141001, end: 20150201

REACTIONS (2)
  - Depression [Recovered/Resolved]
  - Personality change [Recovered/Resolved]
